FAERS Safety Report 9830842 (Version 1)
Quarter: 2014Q1

REPORT INFORMATION
  Report Type: Spontaneous
  Country: PL (occurrence: PL)
  Receive Date: 20140120
  Receipt Date: 20140120
  Transmission Date: 20141002
  Serious: Yes (Hospitalization)
  Sender: FDA-Public Use
  Company Number: PL-ABBVIE-14P-129-1188849-00

PATIENT
  Age: 40 Year
  Sex: Female

DRUGS (6)
  1. HUMIRA [Suspect]
     Indication: CROHN^S DISEASE
     Route: 058
     Dates: start: 20121003
  2. HUMIRA [Suspect]
     Route: 058
     Dates: start: 20121017
  3. HUMIRA [Suspect]
     Route: 058
     Dates: end: 201309
  4. EUTHYROX [Concomitant]
     Indication: HYPOTHYROIDISM
  5. CALPEROS [Concomitant]
     Indication: OSTEOPENIA
  6. ALFADIOL [Concomitant]
     Indication: OSTEOPENIA

REACTIONS (4)
  - Tubulointerstitial nephritis [Recovering/Resolving]
  - Renal failure acute [Recovering/Resolving]
  - Blood creatinine increased [Recovering/Resolving]
  - Leukocyturia [Recovered/Resolved]
